FAERS Safety Report 6190578-2 (Version None)
Quarter: 2009Q2

REPORT INFORMATION
  Report Type: 
  Country: None (occurrence: None)
  Receive Date: 20090514
  Receipt Date: 20090305
  Transmission Date: 20091009
  Serious: Yes (Death, Other)
  Sender: FDA-Public Use
  Company Number: US-BRISTOL-MYERS SQUIBB COMPANY-14478234

PATIENT
  Age: 57 Year
  Sex: Male

DRUGS (8)
  1. IXEMPRA KIT [Suspect]
     Indication: PROSTATE CANCER
     Dosage: RECD ONLY ONE DOSE
     Route: 042
     Dates: start: 20080603, end: 20080603
  2. DECADRON [Concomitant]
  3. BENADRYL [Concomitant]
  4. TOPROL-XL [Concomitant]
  5. COLCHICINE [Concomitant]
  6. TYLENOL [Concomitant]
  7. TRIAMTERENE [Concomitant]
     Dosage: 1DF-37.5/75 1/2 PRN
  8. ALEVE [Concomitant]

REACTIONS (3)
  - ANAEMIA [None]
  - MALIGNANT NEOPLASM PROGRESSION [None]
  - NEUROPATHY PERIPHERAL [None]
